FAERS Safety Report 9764657 (Version 1)
Quarter: 2013Q4

REPORT INFORMATION
  Report Type: Spontaneous
  Country: AT (occurrence: AT)
  Receive Date: 20131217
  Receipt Date: 20131217
  Transmission Date: 20140711
  Serious: Yes (Other)
  Sender: FDA-Public Use
  Company Number: AT-VERTEX PHARMACEUTICALS INC-2013-011823

PATIENT
  Age: 37 Year
  Sex: Male

DRUGS (6)
  1. INCIVO [Suspect]
     Indication: HEPATITIS C
     Dates: start: 2013
  2. PEGASYS [Suspect]
     Indication: HEPATITIS C
     Dates: start: 2013
  3. COPEGUS [Suspect]
     Indication: HEPATITIS C
     Dates: start: 2013
  4. COPEGUS [Suspect]
     Dosage: 600 MG, UNK
     Dates: start: 2013
  5. COPEGUS [Suspect]
     Dates: start: 2013
  6. COPEGUS [Suspect]
     Dates: start: 2013

REACTIONS (10)
  - Palpitations [Unknown]
  - Transaminases increased [Unknown]
  - Diabetes mellitus [Unknown]
  - Blood glucose increased [Unknown]
  - Platelet count decreased [Unknown]
  - Bronchitis [Unknown]
  - Cough [Unknown]
  - Depressive symptom [Unknown]
  - Sleep disorder [Unknown]
  - Adverse event [Unknown]
